FAERS Safety Report 9542629 (Version 2)
Quarter: 2013Q4

REPORT INFORMATION
  Report Type: Spontaneous
  Country: GB (occurrence: GB)
  Receive Date: 20130923
  Receipt Date: 20131203
  Transmission Date: 20140711
  Serious: Yes (Other)
  Sender: FDA-Public Use
  Company Number: GB-PFIZER INC-2013271111

PATIENT
  Sex: Female

DRUGS (4)
  1. PREGABALIN [Suspect]
     Indication: BORDERLINE PERSONALITY DISORDER
     Dosage: 125 MG, UNK
  2. CHLORPROMAZINE [Suspect]
     Indication: BORDERLINE PERSONALITY DISORDER
     Dosage: 100 MG, UNK
     Dates: start: 200810
  3. NORTRIPTYLINE [Suspect]
     Indication: DEPRESSION
     Dosage: 100 MG, UNK
  4. ARIPIPRAZOLE [Suspect]
     Indication: BORDERLINE PERSONALITY DISORDER
     Dosage: 15 MG, UNK

REACTIONS (4)
  - Hypertension [Unknown]
  - Tachycardia [Unknown]
  - Coagulopathy [Not Recovered/Not Resolved]
  - Visual impairment [Not Recovered/Not Resolved]
